FAERS Safety Report 9061274 (Version 3)
Quarter: 2013Q1

REPORT INFORMATION
  Report Type: Report from Study
  Country: US (occurrence: US)
  Receive Date: 20130204
  Receipt Date: 20130326
  Transmission Date: 20140127
  Serious: Yes (Death, Hospitalization, Other)
  Sender: FDA-Public Use
  Company Number: US-ASTELLAS-2013US001102

PATIENT
  Age: 86 None
  Sex: Male

DRUGS (4)
  1. ERLOTINIB TABLET [Suspect]
     Indication: LUNG CARCINOMA CELL TYPE UNSPECIFIED STAGE 0
     Dosage: 100 MG, UID/QD
     Route: 048
     Dates: start: 20110902, end: 20130106
  2. GLYCERYL TRINITRATE [Concomitant]
     Indication: PRODUCT USED FOR UNKNOWN INDICATION
     Dosage: 0.4 MG, PRN
     Route: 060
     Dates: start: 20111207
  3. PROCHLORPERAZINE [Concomitant]
     Indication: PRODUCT USED FOR UNKNOWN INDICATION
     Dosage: 10 MG, TID
     Route: 048
     Dates: start: 20110824
  4. LEVALBUTEROL [Concomitant]
     Indication: DYSPNOEA
     Dosage: 90UG, PRN, Q4 HRS
     Route: 055
     Dates: start: 20110707

REACTIONS (13)
  - Incorrect dose administered [Unknown]
  - Malignant neoplasm progression [Fatal]
  - Transaminases increased [Unknown]
  - Rash [Unknown]
  - Leukocytosis [Unknown]
  - Hyponatraemia [Unknown]
  - Hypoglycaemia [Unknown]
  - Anaemia of chronic disease [Unknown]
  - Atrial fibrillation [Unknown]
  - Thrombocytosis [Unknown]
  - Renal failure acute [Unknown]
  - Malignant pleural effusion [Unknown]
  - Pneumonia [Unknown]
